FAERS Safety Report 7617935-9 (Version None)
Quarter: 2011Q3

REPORT INFORMATION
  Report Type: 
  Country: None (occurrence: None)
  Receive Date: 20110718
  Receipt Date: 20110701
  Transmission Date: 20111222
  Serious: Yes (Other)
  Sender: FDA-Public Use
  Company Number: PHHY2011US59628

PATIENT
  Sex: Female

DRUGS (8)
  1. VOLTAREN [Concomitant]
  2. SOMA [Concomitant]
  3. EFFEXOR [Concomitant]
  4. HYDROCODONE [Concomitant]
  5. DURAGESIC-100 [Concomitant]
  6. RECLAST [Suspect]
     Dosage: UNK UKN, UNK
     Route: 042
  7. FLECTOR [Concomitant]
  8. WELLBUTRIN [Concomitant]

REACTIONS (4)
  - OSTEONECROSIS OF JAW [None]
  - TOOTH LOSS [None]
  - MUSCULOSKELETAL CHEST PAIN [None]
  - MUSCLE SPASMS [None]
